FAERS Safety Report 11507201 (Version 1)
Quarter: 2015Q3

REPORT INFORMATION
  Report Type: Spontaneous
  Country: US (occurrence: US)
  Receive Date: 20150915
  Receipt Date: 20150915
  Transmission Date: 20151125
  Serious: No
  Sender: FDA-Public Use
  Company Number: US-ASTRAZENECA-2015SE62524

PATIENT

DRUGS (2)
  1. PROBIOTICS [Concomitant]
     Active Substance: PROBIOTICS NOS
  2. NEXIUM [Suspect]
     Active Substance: ESOMEPRAZOLE MAGNESIUM
     Dosage: DAILY
     Route: 048

REACTIONS (6)
  - Gastrointestinal pain [Not Recovered/Not Resolved]
  - Intentional product misuse [Unknown]
  - Gastrointestinal inflammation [Unknown]
  - Activities of daily living impaired [Not Recovered/Not Resolved]
  - Gastric disorder [Unknown]
  - Gastrointestinal disorder [Not Recovered/Not Resolved]
